FAERS Safety Report 7648300-6 (Version None)
Quarter: 2011Q3

REPORT INFORMATION
  Report Type: 
  Country: None (occurrence: None)
  Receive Date: 20110801
  Receipt Date: 20110726
  Transmission Date: 20111222
  Serious: Yes (Other)
  Sender: FDA-Public Use
  Company Number: GB-PFIZER INC-2011153858

PATIENT
  Age: 46 Year
  Sex: Female

DRUGS (2)
  1. DEPO-MEDROL [Suspect]
     Dosage: 120 MG, UNK
     Route: 030
     Dates: start: 20090425
  2. KENALOG [Suspect]
     Dosage: 80 MG, UNK
     Route: 030
     Dates: start: 20090320

REACTIONS (1)
  - LIPOATROPHY [None]
